FAERS Safety Report 15222342 (Version 4)
Quarter: 2018Q4

REPORT INFORMATION
  Report Type: Report from Study
  Country: US (occurrence: US)
  Receive Date: 20180731
  Receipt Date: 20181221
  Transmission Date: 20190204
  Serious: Yes (Hospitalization, Other)
  Sender: FDA-Public Use
  Company Number: US-ALEXION PHARMACEUTICALS INC.-A201809338

PATIENT
  Sex: Male

DRUGS (1)
  1. SOLIRIS [Suspect]
     Active Substance: ECULIZUMAB
     Indication: PRODUCT USED FOR UNKNOWN INDICATION
     Dosage: UNK
     Route: 065

REACTIONS (5)
  - Staphylococcal infection [Unknown]
  - Haemoglobin decreased [Not Recovered/Not Resolved]
  - Device related infection [Unknown]
  - Increased tendency to bruise [Not Recovered/Not Resolved]
  - Platelet count decreased [Not Recovered/Not Resolved]
